FAERS Safety Report 5271653-3 (Version None)
Quarter: 2007Q1

REPORT INFORMATION
  Report Type: 
  Country: None (occurrence: None)
  Receive Date: 20070321
  Receipt Date: 20070310
  Transmission Date: 20070707
  Serious: Yes (Other)
  Sender: FDA-Public Use
  Company Number: US-PFIZER INC-2007019622

PATIENT
  Sex: Male

DRUGS (3)
  1. CHANTIX [Suspect]
     Dates: start: 20070304, end: 20070308
  2. ZOLPIDEM TARTRATE [Concomitant]
  3. HERBAL PREPARATION [Concomitant]

REACTIONS (2)
  - AGEUSIA [None]
  - ANOSMIA [None]
